FAERS Safety Report 5742293-4 (Version None)
Quarter: 2008Q2

REPORT INFORMATION
  Report Type: 
  Country: None (occurrence: None)
  Receive Date: 20080514
  Receipt Date: 20080514
  Transmission Date: 20081010
  Serious: Yes (Life-Threatening, Hospitalization)
  Sender: FDA-Public Use
  Company Number: None

PATIENT
  Age: 55 Year
  Sex: Female
  Weight: 58.9676 kg

DRUGS (1)
  1. DIGOXIN [Suspect]

REACTIONS (7)
  - CEREBROVASCULAR ACCIDENT [None]
  - DIZZINESS [None]
  - HAEMORRHAGE [None]
  - NAUSEA [None]
  - PHARMACEUTICAL PRODUCT COMPLAINT [None]
  - PLASMA VISCOSITY DECREASED [None]
  - VOMITING [None]
